FAERS Safety Report 7558289-6 (Version None)
Quarter: 2011Q2

REPORT INFORMATION
  Report Type: 
  Country: None (occurrence: None)
  Receive Date: 20110620
  Receipt Date: 20110607
  Transmission Date: 20111010
  Serious: Yes (Other)
  Sender: FDA-Public Use
  Company Number: JP-AMGEN-JPNCT2011023901

PATIENT
  Age: 66 Year
  Sex: Female
  Weight: 50 kg

DRUGS (21)
  1. PANITUMUMAB [Suspect]
     Indication: COLORECTAL CANCER
     Dosage: 6 MG/KG, Q2WK
     Route: 041
     Dates: start: 20100913, end: 20100913
  2. FLUOROURACIL [Suspect]
     Indication: COLORECTAL CANCER
     Route: 041
     Dates: start: 20100913, end: 20101014
  3. DEXAMETHASONE SODIUM PHOSPHATE [Concomitant]
     Dosage: UNK
     Route: 042
  4. ZANTAC [Concomitant]
     Dosage: UNK
     Route: 042
  5. GASMOTIN [Concomitant]
     Dosage: UNK
     Route: 048
  6. AZUCURENIN S [Concomitant]
     Dosage: UNK
     Route: 048
  7. PANITUMUMAB [Suspect]
     Dosage: 6 MG/KG, Q2WK
     Route: 041
     Dates: start: 20101012, end: 20101012
  8. MIYA-BM [Concomitant]
     Dosage: UNK
     Route: 048
  9. IRINOTECAN HCL [Suspect]
     Indication: COLORECTAL CANCER
     Route: 041
     Dates: start: 20100913, end: 20101014
  10. LEUCOVORIN CALCIUM [Suspect]
     Route: 041
  11. VITANEURIN INTRAVENOUS [Concomitant]
     Dosage: UNK
     Route: 048
  12. GRANISETRON [Concomitant]
     Dosage: UNK
     Route: 042
  13. PANITUMUMAB [Suspect]
     Dosage: 6 MG/KG, Q2WK
     Route: 041
     Dates: start: 20101206
  14. LEUCOVORIN CALCIUM [Suspect]
     Indication: COLORECTAL CANCER
     Route: 041
     Dates: start: 20100913, end: 20101014
  15. ANTIHISTAMINES [Concomitant]
     Indication: PROPHYLAXIS
     Dosage: UNK
     Route: 065
  16. FAMOTIDINE [Concomitant]
     Dosage: UNK
     Route: 048
  17. URSAMIC [Concomitant]
     Dosage: UNK
     Route: 048
  18. MAGMITT [Concomitant]
     Dosage: UNK
     Route: 048
  19. IRINOTECAN HCL [Suspect]
     Route: 041
  20. FLUOROURACIL [Suspect]
     Route: 041
  21. CORTICOSTEROIDS [Concomitant]
     Indication: PROPHYLAXIS
     Dosage: UNK
     Route: 065

REACTIONS (2)
  - BONE MARROW FAILURE [None]
  - DERMATITIS ACNEIFORM [None]
